FAERS Safety Report 6183973-9 (Version None)
Quarter: 2009Q2

REPORT INFORMATION
  Report Type: 
  Country: None (occurrence: None)
  Receive Date: 20090508
  Receipt Date: 20090504
  Transmission Date: 20091009
  Serious: Yes (Death, Hospitalization, Other)
  Sender: FDA-Public Use
  Company Number: FR-ASTRAZENECA-2009CG00474

PATIENT
  Age: 27780 Day
  Sex: Male

DRUGS (4)
  1. CASODEX [Suspect]
     Indication: PROSTATE CANCER
     Route: 048
     Dates: start: 20090101, end: 20090211
  2. ZOLADEX [Concomitant]
     Indication: PROSTATE CANCER
     Route: 058
     Dates: start: 20090101, end: 20090211
  3. NEXIUM [Concomitant]
     Route: 048
  4. LACTULOSE [Concomitant]
     Route: 048

REACTIONS (1)
  - JAUNDICE [None]
